FAERS Safety Report 22393902 (Version 2)
Quarter: 2023Q2

REPORT INFORMATION
  Report Type: Spontaneous
  Country: GB (occurrence: GB)
  Receive Date: 20230601
  Receipt Date: 20230613
  Transmission Date: 20230721
  Serious: Yes (Death)
  Sender: FDA-Public Use
  Company Number: GB-ROCHE-3225687

PATIENT
  Age: 49 Year
  Sex: Female

DRUGS (17)
  1. CARBOPLATIN [Suspect]
     Active Substance: CARBOPLATIN
     Indication: B-cell lymphoma
     Dosage: UNK
     Route: 065
     Dates: start: 20220401, end: 20220601
  2. CYTARABINE [Suspect]
     Active Substance: CYTARABINE
     Indication: B-cell lymphoma
     Dosage: UNK
     Route: 065
     Dates: start: 20220601, end: 20220601
  3. VINCRISTINE SULFATE [Suspect]
     Active Substance: VINCRISTINE SULFATE
     Indication: B-cell lymphoma
     Dosage: UNK
     Route: 065
     Dates: start: 20211011, end: 20220105
  4. DOXORUBICIN HYDROCHLORIDE [Suspect]
     Active Substance: DOXORUBICIN HYDROCHLORIDE
     Indication: B-cell lymphoma
     Dosage: UNK
     Route: 065
     Dates: start: 20211011, end: 20220105
  5. GEMCITABINE HYDROCHLORIDE [Suspect]
     Active Substance: GEMCITABINE HYDROCHLORIDE
     Indication: B-cell lymphoma
     Dosage: UNK
     Route: 065
     Dates: start: 20221108, end: 20221108
  6. OXALIPLATIN [Suspect]
     Active Substance: OXALIPLATIN
     Indication: B-cell lymphoma
     Dosage: UNK
     Route: 065
     Dates: start: 20221108, end: 20221108
  7. MABTHERA [Suspect]
     Active Substance: RITUXIMAB
     Indication: B-cell lymphoma
     Dosage: UNK
     Route: 041
     Dates: start: 20211011, end: 20220105
  8. MABTHERA [Suspect]
     Active Substance: RITUXIMAB
     Dosage: UNK
     Route: 041
     Dates: start: 20221108, end: 20221108
  9. MABTHERA [Suspect]
     Active Substance: RITUXIMAB
     Dosage: UNK
     Route: 041
     Dates: start: 20220401, end: 20220601
  10. MABTHERA [Suspect]
     Active Substance: RITUXIMAB
     Dosage: 800 MG, EVERY 3 WEEKS
     Route: 041
     Dates: start: 20221115, end: 20221206
  11. BENDAMUSTINE [Suspect]
     Active Substance: BENDAMUSTINE
     Indication: B-cell lymphoma
     Dosage: UNK
     Route: 065
     Dates: start: 20220921, end: 20220921
  12. ETOPOSIDE PHOSPHATE [Suspect]
     Active Substance: ETOPOSIDE PHOSPHATE
     Indication: B-cell lymphoma
     Dosage: UNK
     Route: 065
     Dates: start: 20220401, end: 20220601
  13. IFOSFAMIDE [Suspect]
     Active Substance: IFOSFAMIDE
     Indication: B-cell lymphoma
     Dosage: UNK
     Route: 065
     Dates: start: 20220401, end: 20220601
  14. POLATUZUMAB VEDOTIN [Suspect]
     Active Substance: POLATUZUMAB VEDOTIN
     Indication: B-cell lymphoma
     Dosage: UNK
     Route: 042
     Dates: start: 20220921, end: 20220921
  15. POLATUZUMAB VEDOTIN [Suspect]
     Active Substance: POLATUZUMAB VEDOTIN
     Dosage: 240 MG, EVERY 3 WEEKS
     Route: 042
     Dates: start: 20221209, end: 20221229
  16. PREDNISONE [Suspect]
     Active Substance: PREDNISONE
     Indication: B-cell lymphoma
     Dosage: UNK
     Route: 065
     Dates: start: 20211011, end: 20220105
  17. CYCLOPHOSPHAMIDE [Suspect]
     Active Substance: CYCLOPHOSPHAMIDE
     Indication: B-cell lymphoma
     Dosage: UNK
     Route: 065
     Dates: start: 20211011, end: 20220105

REACTIONS (2)
  - Neoplasm progression [Fatal]
  - Off label use [Unknown]

NARRATIVE: CASE EVENT DATE: 20230102
